FAERS Safety Report 8469672-9 (Version None)
Quarter: 2012Q2

REPORT INFORMATION
  Report Type: 
  Country: None (occurrence: None)
  Receive Date: 20120626
  Receipt Date: 20120614
  Transmission Date: 20120825
  Serious: Yes (Other)
  Sender: FDA-Public Use
  Company Number: JP-FRI-1000031578

PATIENT
  Age: 2 Decade
  Sex: Female

DRUGS (1)
  1. LEXAPRO [Suspect]
     Indication: SCHIZOAFFECTIVE DISORDER
     Dosage: 20 MG
     Route: 048

REACTIONS (1)
  - VISUAL ACUITY REDUCED [None]
